FAERS Safety Report 9442348 (Version 3)
Quarter: 2016Q2

REPORT INFORMATION
  Report Type: Spontaneous
  Country: FR (occurrence: FR)
  Receive Date: 20130806
  Receipt Date: 20160428
  Transmission Date: 20160815
  Serious: Yes (Death, Life-Threatening, Hospitalization, Other)
  Sender: FDA-Public Use
  Company Number: FR-ELI_LILLY_AND_COMPANY-FR201308000036

PATIENT
  Age: 71 Year
  Sex: Male

DRUGS (1)
  1. GEMZAR [Suspect]
     Active Substance: GEMCITABINE HYDROCHLORIDE
     Dosage: UNK
     Route: 042
     Dates: start: 20130428, end: 20130506

REACTIONS (15)
  - Anuria [Unknown]
  - Mucosal inflammation [Unknown]
  - Lung disorder [Unknown]
  - Generalised oedema [Unknown]
  - Capillary leak syndrome [Unknown]
  - Oedema peripheral [Unknown]
  - Hyperthermia [Unknown]
  - Pancytopenia [Fatal]
  - General physical health deterioration [Unknown]
  - Diarrhoea [Unknown]
  - Erythrosis [Unknown]
  - Septic shock [Unknown]
  - Rash [Unknown]
  - Multiple organ dysfunction syndrome [Unknown]
  - Circulatory collapse [Unknown]

NARRATIVE: CASE EVENT DATE: 20130428
